FAERS Safety Report 13619187 (Version 2)
Quarter: 2017Q2

REPORT INFORMATION
  Report Type: Report from Study
  Country: HR (occurrence: HR)
  Receive Date: 20170606
  Receipt Date: 20170612
  Transmission Date: 20170830
  Serious: Yes (Hospitalization)
  Sender: FDA-Public Use
  Company Number: PHHY2017HR080884

PATIENT
  Age: 33 Year
  Sex: Female
  Weight: 70.5 kg

DRUGS (6)
  1. VOLTARENE RESINATE [Suspect]
     Active Substance: DICLOFENAC SODIUM
     Indication: PRODUCT USED FOR UNKNOWN INDICATION
     Dosage: UNK
     Route: 048
     Dates: start: 20040209, end: 20040211
  2. DOXYCYCLINE. [Concomitant]
     Active Substance: DOXYCYCLINE
     Indication: PRODUCT USED FOR UNKNOWN INDICATION
     Route: 065
  3. ANDOL [Suspect]
     Active Substance: ASPIRIN
     Indication: PYREXIA
     Route: 048
     Dates: start: 20040209, end: 20040211
  4. PEPTORAN [Concomitant]
     Active Substance: RANITIDINE HYDROCHLORIDE
     Indication: PRODUCT USED FOR UNKNOWN INDICATION
     Route: 065
  5. BAZEDOXIFENE ACETATE [Suspect]
     Active Substance: BAZEDOXIFENE ACETATE
     Indication: PROPHYLAXIS
  6. BAZEDOXIFENE ACETATE [Suspect]
     Active Substance: BAZEDOXIFENE ACETATE
     Indication: OSTEOPOROSIS PROPHYLAXIS
     Dosage: 40 MG, QD
     Route: 048
     Dates: start: 20030609, end: 20040211

REACTIONS (2)
  - Anaemia [Unknown]
  - Duodenal ulcer [Unknown]

NARRATIVE: CASE EVENT DATE: 20040211
